FAERS Safety Report 7494821-9 (Version None)
Quarter: 2011Q2

REPORT INFORMATION
  Report Type: 
  Country: None (occurrence: None)
  Receive Date: 20110520
  Receipt Date: 20091009
  Transmission Date: 20111010
  Serious: Yes (Hospitalization)
  Sender: FDA-Public Use
  Company Number: B0597849A

PATIENT
  Sex: Female
  Weight: 66 kg

DRUGS (25)
  1. NEXIUM [Suspect]
     Dosage: 1UNIT PER DAY
     Route: 048
  2. VERPAMIL HCL [Suspect]
     Route: 048
  3. ATHYMIL [Concomitant]
     Route: 065
  4. ZOLPIDEM [Suspect]
     Dosage: 2UNIT PER DAY
     Route: 048
  5. LANZOR [Concomitant]
     Route: 065
  6. FLOLAN [Suspect]
     Indication: PULMONARY ARTERIAL HYPERTENSION
     Dosage: 8NGKM PER DAY
     Route: 042
     Dates: start: 20090915
  7. TRACLEER [Suspect]
     Indication: PULMONARY ARTERIAL HYPERTENSION
     Dosage: 250MG PER DAY
     Route: 048
     Dates: start: 20060901
  8. REVATIO [Suspect]
     Indication: PULMONARY ARTERIAL HYPERTENSION
     Dosage: 60MG PER DAY
     Route: 048
     Dates: start: 20081001
  9. TERCIAN [Suspect]
     Dosage: 15DROP PER DAY
     Route: 048
  10. LORAZEPAM [Suspect]
     Dosage: 4MG PER DAY
     Route: 048
  11. UNFRACTIONATED HEPARIN [Concomitant]
     Dates: start: 20090915, end: 20090925
  12. XYZAL [Concomitant]
     Route: 065
  13. MOTILIUM [Concomitant]
     Route: 065
  14. VALSARTAN [Concomitant]
     Dosage: 160MG PER DAY
     Route: 048
  15. VASTAREL [Concomitant]
     Indication: VERTIGO
     Dosage: 35MG TWICE PER DAY
     Route: 048
  16. AMARYL [Concomitant]
     Route: 065
  17. IMOVANE [Concomitant]
     Route: 065
  18. ATARAX [Suspect]
     Dosage: 1UNIT PER DAY
     Route: 048
  19. LASIX [Suspect]
     Dosage: 2UNIT PER DAY
     Route: 048
  20. TANGANIL [Concomitant]
     Route: 065
  21. COUMADIN [Suspect]
     Route: 048
  22. LEVOTHYROXINE SODIUM [Suspect]
     Indication: HYPOTHYROIDISM
     Dosage: 50MCG PER DAY
     Route: 048
  23. MIANSERINE [Suspect]
     Dosage: 1UNIT PER DAY
     Route: 048
  24. TRAMADOL HCL [Suspect]
     Dosage: 1UNIT PER DAY
     Route: 048
  25. SECTRAL [Concomitant]
     Route: 065

REACTIONS (6)
  - THROMBOCYTOPENIA [None]
  - LOWER GASTROINTESTINAL HAEMORRHAGE [None]
  - GASTROINTESTINAL DISORDER [None]
  - EPISTAXIS [None]
  - RECTAL HAEMORRHAGE [None]
  - MELAENA [None]
